FAERS Safety Report 7779918-8 (Version None)
Quarter: 2011Q3

REPORT INFORMATION
  Report Type: 
  Country: None (occurrence: None)
  Receive Date: 20110927
  Receipt Date: 20110919
  Transmission Date: 20111222
  Serious: Yes (Hospitalization)
  Sender: FDA-Public Use
  Company Number: PL-ASTELLAS-2011US005580

PATIENT
  Sex: Male
  Weight: 17 kg

DRUGS (2)
  1. TACROLIMUS [Suspect]
     Indication: DERMATITIS ATOPIC
     Dosage: 0.03 %, UID/QD
     Route: 061
     Dates: start: 20090401
  2. DESLORATADINE [Concomitant]
     Indication: HYPERSENSITIVITY
     Dosage: UNK
     Route: 048
     Dates: start: 20110201

REACTIONS (4)
  - GASTRITIS VIRAL [None]
  - DERMATITIS ATOPIC [None]
  - FOOD ALLERGY [None]
  - COLITIS [None]
